FAERS Safety Report 12833651 (Version 1)
Quarter: 2016Q4

REPORT INFORMATION
  Report Type: Report from Study
  Country: None (occurrence: BE)
  Receive Date: 20161010
  Receipt Date: 20161010
  Transmission Date: 20170207
  Serious: Yes (Hospitalization)
  Sender: FDA-Public Use
  Company Number: BE-ABBVIE-16P-013-1745051-00

PATIENT
  Age: 77 Year
  Sex: Female

DRUGS (8)
  1. DUODOPA [Suspect]
     Active Substance: CARBIDOPA\LEVODOPA
     Indication: PARKINSON^S DISEASE
     Dosage: AM= 6.5 ML; CD= 1.6 ML/H DURING 16 HRS; ED= 1.5
     Route: 050
     Dates: start: 20150411, end: 20150921
  2. LEVODOPA/BENSERAZIDE (PROLOPA HBS) [Concomitant]
     Dosage: FORM STRENGTH: 100MG/25MG
     Route: 065
  3. CALCIUM, COLECALCIFEROL (STEOVIT) [Concomitant]
     Indication: PRODUCT USED FOR UNKNOWN INDICATION
     Route: 065
  4. DUODOPA [Suspect]
     Active Substance: CARBIDOPA\LEVODOPA
     Dosage: AM= 6.5 ML; CD= 1.7 ML/H DURING 16 HRS; ED= 1.5 ML
     Route: 050
     Dates: start: 20150921, end: 20161004
  5. AZILECT [Concomitant]
     Active Substance: RASAGILINE MESYLATE
     Route: 065
  6. LEVODOPA/BENSERAZIDE (PROLOPA HBS) [Concomitant]
     Indication: PRODUCT USED FOR UNKNOWN INDICATION
     Dosage: FORM STRENGTH: 100MG/25MG
     Route: 065
  7. AZILECT [Concomitant]
     Active Substance: RASAGILINE MESYLATE
     Indication: PRODUCT USED FOR UNKNOWN INDICATION
     Route: 065
  8. BALLOTA FOETIDA (SEDINAL) [Concomitant]
     Indication: PRODUCT USED FOR UNKNOWN INDICATION
     Route: 065

REACTIONS (2)
  - Device occlusion [Not Recovered/Not Resolved]
  - Device dislocation [Not Recovered/Not Resolved]

NARRATIVE: CASE EVENT DATE: 20161004
